FAERS Safety Report 6306899-6 (Version None)
Quarter: 2009Q3

REPORT INFORMATION
  Report Type: 
  Country: None (occurrence: None)
  Receive Date: 20090811
  Receipt Date: 20090811
  Transmission Date: 20100115
  Serious: No
  Sender: FDA-Public Use
  Company Number: None

PATIENT
  Age: 58 Year
  Sex: Female
  Weight: 58.9676 kg

DRUGS (1)
  1. SAVELLA [Suspect]
     Indication: FIBROMYALGIA
     Dosage: DAY 1 12.5 MG EVENING ONLY FOLLOWED PKG. DIRE  PO
     Route: 048
     Dates: start: 20090608, end: 20090804

REACTIONS (7)
  - ANGER [None]
  - ANXIETY [None]
  - CHEST DISCOMFORT [None]
  - DEPRESSION [None]
  - FEELING OF DESPAIR [None]
  - INSOMNIA [None]
  - PANIC REACTION [None]
